FAERS Safety Report 7485601-9 (Version None)
Quarter: 2011Q2

REPORT INFORMATION
  Report Type: 
  Country: None (occurrence: None)
  Receive Date: 20110517
  Receipt Date: 20110104
  Transmission Date: 20111010
  Serious: Yes (Other)
  Sender: FDA-Public Use
  Company Number: US-BAYER-2011-001533

PATIENT
  Sex: Female
  Weight: 54 kg

DRUGS (4)
  1. MEDICATED SHAMPOOS [Concomitant]
  2. HYDROCORTISONE [Concomitant]
  3. ALEVE (CAPLET) [Suspect]
     Dosage: 440 MG, Q4HR
     Route: 048
     Dates: start: 20090101
  4. PEDIALYTE [ELECTROLYTES NOS,GLUCOSE] [Concomitant]

REACTIONS (4)
  - PRURITUS [None]
  - BACK PAIN [None]
  - CONVULSION [None]
  - NAUSEA [None]
